FAERS Safety Report 5584938-8 (Version None)
Quarter: 2007Q4

REPORT INFORMATION
  Report Type: 
  Country: None (occurrence: None)
  Receive Date: 20071130
  Receipt Date: 20061003
  Transmission Date: 20080405
  Serious: Yes (Disabling)
  Sender: FDA-Public Use
  Company Number: WAES 0608USA03219

PATIENT
  Age: 68 Year
  Sex: Female
  Weight: 38.5557 kg

DRUGS (2)
  1. FOSAMAX [Suspect]
     Indication: OSTEOPOROSIS
     Dosage: 70 MG/WKY/PO
     Route: 048
     Dates: start: 20041101, end: 20060801
  2. VERAPAMIL [Concomitant]

REACTIONS (1)
  - MYALGIA [None]
